FAERS Safety Report 7034813-7 (Version None)
Quarter: 2010Q4

REPORT INFORMATION
  Report Type: 
  Country: None (occurrence: None)
  Receive Date: 20101008
  Receipt Date: 20101004
  Transmission Date: 20110411
  Serious: Yes (Hospitalization)
  Sender: FDA-Public Use
  Company Number: US-SANOFI-AVENTIS-2010SA060116

PATIENT
  Age: 85 Year
  Sex: Male

DRUGS (2)
  1. ELIGARD [Suspect]
     Dosage: EVERY SIX MONTHS
     Route: 065
     Dates: start: 20070101, end: 20070101
  2. ELIGARD [Suspect]
     Dosage: EVERY SIX MONTHS
     Route: 065
     Dates: start: 20100927, end: 20100927

REACTIONS (7)
  - ABNORMAL BEHAVIOUR [None]
  - ASTHENIA [None]
  - DEMENTIA [None]
  - DEPRESSION [None]
  - HALLUCINATION [None]
  - NAUSEA [None]
  - THINKING ABNORMAL [None]
